FAERS Safety Report 15461125 (Version 2)
Quarter: 2018Q4

REPORT INFORMATION
  Report Type: Report from Study
  Country: US (occurrence: US)
  Receive Date: 20181003
  Receipt Date: 20181031
  Transmission Date: 20190204
  Serious: Yes (Hospitalization)
  Sender: FDA-Public Use
  Company Number: US-PFIZER INC-2018383435

PATIENT
  Age: 75 Year
  Sex: Female
  Weight: 55.6 kg

DRUGS (1)
  1. TORISEL [Suspect]
     Active Substance: TEMSIROLIMUS
     Dosage: 25 MG/DOSE, WEEKLY
     Route: 042

REACTIONS (1)
  - Colitis [Recovered/Resolved]
